FAERS Safety Report 23398717 (Version 1)
Quarter: 2024Q1

REPORT INFORMATION
  Report Type: Spontaneous
  Country: US (occurrence: US)
  Receive Date: 20240112
  Receipt Date: 20240112
  Transmission Date: 20240410
  Serious: Yes (Death, Hospitalization, Other)
  Sender: FDA-Public Use
  Company Number: US-PFIZER INC-202400010334

PATIENT
  Age: 72 Year
  Sex: Female

DRUGS (8)
  1. RAMIPRIL [Suspect]
     Active Substance: RAMIPRIL
     Dosage: UNK
     Route: 048
  2. METOPROLOL [Suspect]
     Active Substance: METOPROLOL
     Dosage: UNK (ER)
     Route: 048
  3. AMLODIPINE [Suspect]
     Active Substance: AMLODIPINE BESYLATE
     Dosage: UNK
     Route: 048
  4. IRON [Suspect]
     Active Substance: IRON
     Dosage: UNK
     Route: 048
  5. TAMSULOSIN [Suspect]
     Active Substance: TAMSULOSIN
     Dosage: UNK
     Route: 048
  6. MIRTAZAPINE [Suspect]
     Active Substance: MIRTAZAPINE
     Dosage: UNK
     Route: 048
  7. FAMCICLOVIR [Suspect]
     Active Substance: FAMCICLOVIR
     Dosage: UNK
     Route: 048
  8. ALLOPURINOL [Suspect]
     Active Substance: ALLOPURINOL
     Dosage: UNK
     Route: 048

REACTIONS (1)
  - Completed suicide [Fatal]

NARRATIVE: CASE EVENT DATE: 20220101
